FAERS Safety Report 10900501 (Version 2)
Quarter: 2015Q1

REPORT INFORMATION
  Report Type: Spontaneous
  Country: US (occurrence: None)
  Receive Date: 20150303
  Receipt Date: 20150309
  Transmission Date: 20150721
  Serious: Yes (Hospitalization, Other)
  Sender: FDA-Public Use
  Company Number: ADR-2015-00418

PATIENT
  Age: 57 Year
  Sex: Female

DRUGS (2)
  1. BUPIVACAINE [Suspect]
     Active Substance: BUPIVACAINE
     Indication: PAIN
  2. COMPOUNDED MORPHINE [Suspect]
     Active Substance: MORPHINE
     Indication: PAIN

REACTIONS (4)
  - Implant site swelling [None]
  - Device connection issue [None]
  - Incision site swelling [None]
  - Pain [None]

NARRATIVE: CASE EVENT DATE: 20150129
